FAERS Safety Report 5374138-9 (Version None)
Quarter: 2007Q2

REPORT INFORMATION
  Report Type: 
  Country: None (occurrence: None)
  Receive Date: 20070628
  Receipt Date: 20070621
  Transmission Date: 20071010
  Serious: Yes (Hospitalization)
  Sender: FDA-Public Use
  Company Number: JP-ABBOTT-07P-087-0372282-00

PATIENT
  Age: 46 Year
  Sex: Female
  Weight: 46 kg

DRUGS (3)
  1. CLARITHROMYCIN [Suspect]
     Indication: NASOPHARYNGITIS
     Route: 048
     Dates: start: 20070124
  2. NARON ACE [Concomitant]
     Indication: HEADACHE
     Route: 048
     Dates: start: 20070124
  3. PARACETAMOL [Concomitant]
     Indication: PYREXIA
     Route: 048
     Dates: start: 20070124

REACTIONS (4)
  - ASTHMA [None]
  - ATRIAL FIBRILLATION [None]
  - MEDICATION ERROR [None]
  - PNEUMONIA [None]
